FAERS Safety Report 10619898 (Version 2)
Quarter: 2015Q2

REPORT INFORMATION
  Report Type: Report from Study
  Country: US (occurrence: None)
  Receive Date: 20141128
  Receipt Date: 20150615
  Transmission Date: 20150821
  Serious: Yes (Hospitalization)
  Sender: FDA-Public Use
  Company Number: US2014GSK027328

PATIENT
  Age: 28 Year
  Sex: Female
  Weight: 48.5 kg

DRUGS (10)
  1. DAPSONE. [Concomitant]
     Active Substance: DAPSONE
  2. ACYCLOVIR. [Concomitant]
     Active Substance: ACYCLOVIR
  3. VALACYCLOVIR (VALACICLOVIR) [Concomitant]
  4. ABACAVIR [Concomitant]
     Active Substance: ABACAVIR
  5. FLUCONAZOLE. [Concomitant]
     Active Substance: FLUCONAZOLE
  6. HYDROXYZINE HYDROCHLORIDE. [Concomitant]
     Active Substance: HYDROXYZINE HYDROCHLORIDE
  7. LAMIVUDIN (LAMIVUDINE) [Concomitant]
  8. RILPIVIRINE HYDROCHLORIDE [Concomitant]
     Active Substance: RILPIVIRINE HYDROCHLORIDE
  9. MARAVIROC [Suspect]
     Active Substance: MARAVIROC
     Indication: HIV INFECTION
     Dates: start: 20110208, end: 20111111
  10. AZITHROMYCIN [Concomitant]
     Active Substance: AZITHROMYCIN ANHYDROUS

REACTIONS (2)
  - Pyrexia [None]
  - Febrile neutropenia [None]

NARRATIVE: CASE EVENT DATE: 20141116
